FAERS Safety Report 6454304-1 (Version None)
Quarter: 2009Q4

REPORT INFORMATION
  Report Type: 
  Country: None (occurrence: None)
  Receive Date: 20091124
  Receipt Date: 20091117
  Transmission Date: 20100525
  Serious: Yes (Other)
  Sender: FDA-Public Use
  Company Number: US-PFIZER INC-2009281736

PATIENT
  Sex: Male
  Weight: 77.11 kg

DRUGS (7)
  1. XALATAN [Suspect]
     Indication: ANGLE CLOSURE GLAUCOMA
     Dosage: ONE DROP IN BOTH EYES
     Route: 047
     Dates: start: 19980201
  2. XALATAN [Suspect]
     Dosage: 1 GTT, 1X/DAY IN LEFT EYE
     Route: 047
     Dates: start: 20090518
  3. VERAPAMIL HYDROCHLORIDE [Concomitant]
     Indication: HYPERTENSION
     Dosage: UNK
  4. PROVENTIL GENTLEHALER [Concomitant]
     Indication: ASTHMA
     Dosage: UNK
     Route: 055
  5. PREDNISONE [Concomitant]
     Indication: ASTHMA
     Dosage: UNK
  6. ALPHAGAN [Concomitant]
     Indication: GLAUCOMA
     Dosage: UNK
  7. TRUSOPT [Concomitant]
     Indication: GLAUCOMA
     Dosage: UNK

REACTIONS (5)
  - CATARACT [None]
  - EYE IRRITATION [None]
  - INTRAOCULAR PRESSURE INCREASED [None]
  - IRITIS [None]
  - VISION BLURRED [None]
